FAERS Safety Report 6278185-4 (Version None)
Quarter: 2009Q3

REPORT INFORMATION
  Report Type: 
  Country: None (occurrence: None)
  Receive Date: 20090722
  Receipt Date: 20070605
  Transmission Date: 20100115
  Serious: Yes (Hospitalization, Other)
  Sender: FDA-Public Use
  Company Number: US-ASTRAZENECA-2006UW22697

PATIENT
  Age: 22075 Day
  Sex: Female
  Weight: 81.8 kg

DRUGS (58)
  1. SEROQUEL [Suspect]
     Route: 048
     Dates: start: 20040101
  2. SEROQUEL [Suspect]
     Route: 048
     Dates: start: 20050204
  3. PLAVIX [Suspect]
     Route: 048
  4. ASPIRIN [Suspect]
     Route: 048
  5. INSULIN [Concomitant]
     Indication: HYPERGLYCAEMIA
     Dosage: 5 UNITS/HR
     Route: 041
  6. INSULIN [Concomitant]
     Dosage: 70/30 MIXTURE 40 UNITS TO 60 UNITS
  7. INSULIN [Concomitant]
     Dosage: 5 UNITS/HR
     Route: 058
  8. LANTUS [Concomitant]
     Dosage: 20 ML-70 ML
  9. LANTUS [Concomitant]
     Dosage: 45,60,100 UNITS TWO TIMES A DAY
     Route: 058
  10. HUMALOG [Concomitant]
     Dosage: 5 UNITS - 100 UNITS
     Route: 058
  11. PREDNISONE TAB [Concomitant]
     Dosage: 1 MG - 20 MG
     Route: 048
  12. VASOTEC [Concomitant]
     Route: 048
  13. FOLIC ACID [Concomitant]
     Dosage: 1 MG-2 MG
     Route: 048
  14. PREMARIN [Concomitant]
     Route: 048
  15. PREMARIN [Concomitant]
     Route: 048
  16. MECLIZINE [Concomitant]
     Dosage: 12.5 MG - 100 MG
     Route: 048
  17. LASIX [Concomitant]
     Indication: DYSPNOEA
     Dosage: 20 MG-80 MG
     Route: 048
  18. LASIX [Concomitant]
     Indication: BLOOD PRESSURE MANAGEMENT
     Dosage: 20 MG-80 MG
     Route: 048
  19. LASIX [Concomitant]
     Route: 042
  20. LASIX [Concomitant]
     Route: 042
  21. GEMFIBROZIL [Concomitant]
     Dosage: 600 MG-1200 MG
     Route: 048
  22. ATENOLOL [Concomitant]
     Indication: BLOOD PRESSURE INCREASED
     Dosage: 12.5 MG-150 MG
     Route: 048
  23. ENBREL [Concomitant]
     Dosage: 25 MG-75 MG EVERY WEEK
     Route: 058
  24. TYLENOL (CAPLET) [Concomitant]
     Indication: PAIN
  25. TYLENOL W/ CODEINE NO. 3 [Concomitant]
     Indication: PAIN
  26. SENNA [Concomitant]
     Indication: CONSTIPATION
     Dosage: TWO, TWO TIMES A DAY
     Route: 048
  27. SENNA [Concomitant]
     Dosage: ONE AT EVERY NIGHT
     Route: 048
  28. PHENERGAN [Concomitant]
     Indication: NAUSEA
     Dosage: 6.25 MG, 12.5 UNKNOWN
     Route: 042
  29. PHENERGAN [Concomitant]
     Indication: VOMITING
     Dosage: 6.25 MG, 12.5 UNKNOWN
     Route: 042
  30. PHENERGAN [Concomitant]
     Dosage: 12.5 MG-25 MG
     Route: 048
  31. PHENERGAN [Concomitant]
     Dosage: 12.5 MG-25 MG
     Route: 048
  32. FLEXERIL [Concomitant]
     Route: 048
  33. OXYCODONE [Concomitant]
     Dosage: 5 MG ONE OR TWO EVERY FOUR HOURS
     Route: 048
  34. CARBIDOPA-LEVODOPA [Concomitant]
     Dosage: 25/100 UNKNOWN
  35. CARBIDOPA-LEVODOPA [Concomitant]
     Dosage: 10/100 UNKNOWN
  36. METHOTREXATE [Concomitant]
     Indication: RHEUMATOID ARTHRITIS
     Dosage: 25/10 ML INJECTION
  37. METHOTREXATE [Concomitant]
     Dosage: 2.5 MG-25 MG WEEKLY
     Route: 048
  38. COREG [Concomitant]
     Dosage: 3.125 MG-25 MG TWO TIMES A DAY
  39. PRILOSEC [Concomitant]
     Dosage: 20 MG -40 MG DAILY
     Route: 048
  40. NIASPAN [Concomitant]
     Dosage: 500 MG, 1000 MG DAILY
     Route: 048
  41. AVANDAMET [Concomitant]
     Dosage: 4/1000 MG TWO TIMES A DAY
  42. LIPITOR [Concomitant]
     Dosage: 10, 20, 40 MG DAILY
     Route: 048
  43. LOPERAMIDE HYDROCHLORIDE [Concomitant]
     Route: 048
  44. GLIPIZIDE [Concomitant]
     Dosage: 5 MG-20 MG DAILY
     Route: 048
  45. DOCUSATE SODIUM [Concomitant]
     Dosage: 10 UNKNOWN
  46. SYNTHROID [Concomitant]
     Dosage: 25, 125, 150 MCG DAILY
     Route: 048
  47. SYNTHROID [Concomitant]
     Dosage: 0.15, 0.175 MG DAILY
     Route: 048
  48. PROTONIX [Concomitant]
     Route: 048
  49. NEXIUM [Concomitant]
     Dosage: 1 MG, 40 MG
  50. DIAZEPAM [Concomitant]
  51. PREVACID [Concomitant]
     Dosage: 30, 40 MG DAILY
     Route: 048
  52. COMPAZINE [Concomitant]
     Indication: NAUSEA
     Dosage: 10 MG EVERY SIX HOURS
     Route: 048
  53. LISINOPRIL [Concomitant]
     Dosage: 10 MG, 80 MG DAILY
     Route: 048
  54. ISOSORBIDE MONONITRATE [Concomitant]
     Dosage: 20-40 MG
     Route: 048
  55. HEPARIN SODIUM [Concomitant]
     Dosage: PER 1000 UNITS
     Route: 058
  56. ALLEGRA [Concomitant]
  57. ZOLPIDEM TARTRATE [Concomitant]
  58. TICLOPIDINE HCL [Concomitant]

REACTIONS (5)
  - DIABETES MELLITUS [None]
  - DIABETES MELLITUS INADEQUATE CONTROL [None]
  - DIABETIC NEUROPATHY [None]
  - HYPERGLYCAEMIA [None]
  - HYPERGLYCAEMIC HYPEROSMOLAR NONKETOTIC SYNDROME [None]
